FAERS Safety Report 7441692-2 (Version None)
Quarter: 2011Q2

REPORT INFORMATION
  Report Type: 
  Country: None (occurrence: None)
  Receive Date: 20110428
  Receipt Date: 20100306
  Transmission Date: 20111010
  Serious: No
  Sender: FDA-Public Use
  Company Number: A0850345A

PATIENT
  Sex: Male

DRUGS (2)
  1. FLUTICASONE PROPIONATE [Concomitant]
  2. SEREVENT [Suspect]
     Route: 065
     Dates: start: 20100301, end: 20100301

REACTIONS (2)
  - DRUG INEFFECTIVE [None]
  - COUGH [None]
